FAERS Safety Report 25943960 (Version 2)
Quarter: 2025Q4

REPORT INFORMATION
  Report Type: Spontaneous
  Country: US (occurrence: US)
  Receive Date: 20251021
  Receipt Date: 20251209
  Transmission Date: 20260119
  Serious: Yes (Other)
  Sender: BRISTOL-MYERS SQUIBB COMPANY
  Company Number: US-BRISTOL-MYERS SQUIBB COMPANY-2025-142929

PATIENT
  Age: 69 Year
  Sex: Female

DRUGS (2)
  1. LENALIDOMIDE [Suspect]
     Active Substance: LENALIDOMIDE
     Indication: Plasma cell myeloma
     Dosage: FREQUENCY: TAKE 1 WHOLE CAPSULE BY MOUTH W/WATER, W/ OR W/O FOOD DAILY FOR 14 DAYS OUT OF 21 DAY CYCLE
     Route: 048
  2. LENALIDOMIDE [Suspect]
     Active Substance: LENALIDOMIDE
     Dosage: TAKE 1 CAPSULE BY MOUTH WHOLE WITH WATER, WITH OR WITHOUT FOOD, DAILY FOR 14 DAYS OUT OF 21 DAY CYCLE
     Route: 048

REACTIONS (3)
  - Fatigue [Unknown]
  - Tongue disorder [Unknown]
  - Blood test abnormal [Recovering/Resolving]
